FAERS Safety Report 21883654 (Version 1)
Quarter: 2023Q1

REPORT INFORMATION
  Report Type: Report from Study
  Country: CA (occurrence: CA)
  Receive Date: 20230119
  Receipt Date: 20230119
  Transmission Date: 20230418
  Serious: Yes (Hospitalization, Other)
  Sender: FDA-Public Use
  Company Number: None

PATIENT
  Age: 25 Year
  Sex: Female

DRUGS (20)
  1. TOPIRAMATE [Suspect]
     Active Substance: TOPIRAMATE
     Indication: Migraine
     Dosage: 2 EVERY 1 DAYS
     Route: 065
  2. CANDESARTAN [Suspect]
     Active Substance: CANDESARTAN
     Indication: Migraine
     Route: 065
  3. PROPRANOLOL HYDROCHLORIDE [Suspect]
     Active Substance: PROPRANOLOL HYDROCHLORIDE
     Indication: Post-traumatic stress disorder
     Route: 065
  4. ERENUMAB [Suspect]
     Active Substance: ERENUMAB
     Indication: Product used for unknown indication
     Route: 065
  5. AMITRIPTYLINE HYDROCHLORIDE\DIAZEPAM\PERPHENAZINE [Concomitant]
     Active Substance: AMITRIPTYLINE HYDROCHLORIDE\DIAZEPAM\PERPHENAZINE
     Route: 065
  6. TRAMADOL [Concomitant]
     Active Substance: TRAMADOL
     Indication: Fibromyalgia
     Route: 065
  7. BOTULINUM TOXIN TYPE A [Concomitant]
     Active Substance: BOTULINUM TOXIN TYPE A
     Route: 065
  8. DICLOFENAC [Concomitant]
     Active Substance: DICLOFENAC
     Dosage: POWDER FOR SOLUTION ORAL, 1 EVERY 1 MONTHS
     Route: 065
  9. CYMBALTA [Concomitant]
     Active Substance: DULOXETINE HYDROCHLORIDE
     Route: 065
  10. ELETRIPTAN HYDROBROMIDE [Concomitant]
     Active Substance: ELETRIPTAN HYDROBROMIDE
     Dosage: 1 EVERY 1 MONTHS
     Route: 065
  11. MAGNESIUM [Concomitant]
     Active Substance: MAGNESIUM
     Dosage: 1 EVERY 1 DAYS
     Route: 065
  12. NAPROXEN [Concomitant]
     Active Substance: NAPROXEN
     Route: 065
  13. NORTRIPTYLINE HYDROCHLORIDE [Concomitant]
     Active Substance: NORTRIPTYLINE HYDROCHLORIDE
     Route: 065
  14. PREGABALIN [Concomitant]
     Active Substance: PREGABALIN
     Route: 065
  15. ERENUMAB [Suspect]
     Active Substance: ERENUMAB
     Indication: Migraine
  16. CANDESARTAN [Suspect]
     Active Substance: CANDESARTAN
     Indication: Migraine
     Route: 065
  17. PROPRANOLOL HYDROCHLORIDE [Suspect]
     Active Substance: PROPRANOLOL HYDROCHLORIDE
     Indication: Post-traumatic stress disorder
     Route: 065
  18. PROPRANOLOL HYDROCHLORIDE [Suspect]
     Active Substance: PROPRANOLOL HYDROCHLORIDE
     Indication: Post-traumatic stress disorder
     Route: 065
  19. BOTULINUM TOXIN TYPE A [Concomitant]
     Active Substance: BOTULINUM TOXIN TYPE A
     Dosage: POWDER FOR SOLUTION
     Route: 065
  20. NORTRIPTYLINE HYDROCHLORIDE [Concomitant]
     Active Substance: NORTRIPTYLINE HYDROCHLORIDE
     Dosage: 1 EVERY 1 DAYS
     Route: 065

REACTIONS (12)
  - Drug ineffective [Unknown]
  - Dysarthria [Unknown]
  - Headache [Unknown]
  - Injection site pain [Unknown]
  - Insomnia [Unknown]
  - Malaise [Unknown]
  - Nausea [Unknown]
  - Photosensitivity reaction [Unknown]
  - Vomiting [Unknown]
  - Immunodeficiency [Unknown]
  - Migraine [Unknown]
  - Product use in unapproved indication [Unknown]
